FAERS Safety Report 9016755 (Version 2)
Quarter: 2013Q1

REPORT INFORMATION
  Report Type: Spontaneous
  Country: US (occurrence: US)
  Receive Date: 20130116
  Receipt Date: 20130205
  Transmission Date: 20140127
  Serious: No
  Sender: FDA-Public Use
  Company Number: US-PFIZER INC-2013018304

PATIENT
  Age: 61 Year
  Sex: Female
  Weight: 90.7 kg

DRUGS (10)
  1. CHANTIX [Suspect]
     Indication: SMOKING CESSATION THERAPY
     Dosage: 0.5 MG, 1X/DAY
     Route: 048
     Dates: start: 20130103, end: 201301
  2. CHANTIX [Suspect]
     Dosage: 0.5 MG, 2X/DAY
     Route: 048
     Dates: start: 201301
  3. LITHIUM [Concomitant]
     Indication: BIPOLAR DISORDER
     Dosage: 300 MG, DAILY
     Route: 048
     Dates: start: 2005
  4. LITHIUM [Concomitant]
     Dosage: UNK
  5. LORAZEPAM [Concomitant]
     Indication: BIPOLAR DISORDER
     Dosage: UNK
  6. TOPAMAX [Concomitant]
     Dosage: UNK
  7. TRAZODONE [Concomitant]
     Dosage: UNK
  8. SYNTHROID [Concomitant]
     Indication: HYPOTHYROIDISM
     Dosage: UNK
  9. VITAMIN C [Concomitant]
     Dosage: UNK
  10. VITAMIN D [Concomitant]
     Indication: VITAMIN D DECREASED
     Dosage: UNK

REACTIONS (6)
  - Euphoric mood [Unknown]
  - Abnormal dreams [Unknown]
  - Fatigue [Not Recovered/Not Resolved]
  - Insomnia [Recovering/Resolving]
  - Nocturia [Unknown]
  - Appetite disorder [Unknown]
